FAERS Safety Report 7969936-9 (Version None)
Quarter: 2011Q4

REPORT INFORMATION
  Report Type: 
  Country: None (occurrence: None)
  Receive Date: 20111212
  Receipt Date: 20111202
  Transmission Date: 20120403
  Serious: Yes (Hospitalization, Disabling)
  Sender: FDA-Public Use
  Company Number: FR-BRISTOL-MYERS SQUIBB COMPANY-16272577

PATIENT
  Age: 89 Year
  Sex: Female

DRUGS (5)
  1. CELIPROLOL [Concomitant]
     Route: 048
  2. LOVENOX [Suspect]
     Indication: DEEP VEIN THROMBOSIS
     Route: 058
     Dates: start: 20110823
  3. ALDACTONE [Concomitant]
     Dosage: ALDACTONE TABS 50MG
     Route: 048
  4. RABEPRAZOLE SODIUM [Concomitant]
     Route: 048
  5. COUMADIN [Suspect]
     Indication: DEEP VEIN THROMBOSIS
     Dosage: 1 DOSAGE FORM = 2 SCORED TABLETS/D IN THE EVENING  COUMADINE 2 MG (WARFARIN)
     Route: 048
     Dates: start: 20110823, end: 20110905

REACTIONS (4)
  - HAEMATOMA [None]
  - ANAEMIA [None]
  - SKIN NECROSIS [None]
  - HAEMORRHAGE [None]
